FAERS Safety Report 6988716-4 (Version None)
Quarter: 2010Q3

REPORT INFORMATION
  Report Type: 
  Country: None (occurrence: None)
  Receive Date: 20100830
  Receipt Date: 20100505
  Transmission Date: 20110219
  Serious: No
  Sender: FDA-Public Use
  Company Number: 2010057398

PATIENT
  Age: 84 Year
  Sex: Female
  Weight: 61.2 kg

DRUGS (3)
  1. TOVIAZ [Suspect]
     Indication: HYPERTONIC BLADDER
     Dosage: 4 MG, 1X/DAY, ORAL
     Route: 048
     Dates: start: 20100401, end: 20100401
  2. LISINOPRIL [Concomitant]
  3. ELAVIL [Concomitant]

REACTIONS (1)
  - POLLAKIURIA [None]
